FAERS Safety Report 10698070 (Version 4)
Quarter: 2015Q1

REPORT INFORMATION
  Report Type: Spontaneous
  Country: TW (occurrence: TW)
  Receive Date: 20150108
  Receipt Date: 20150213
  Transmission Date: 20150721
  Serious: Yes (Hospitalization, Other)
  Sender: FDA-Public Use
  Company Number: TW-ASTELLAS-2015US000175

PATIENT
  Age: 28 Year
  Sex: Male

DRUGS (2)
  1. PERDIPINE [Suspect]
     Active Substance: NICARDIPINE HYDROCHLORIDE
     Indication: HYPERTENSION
     Dosage: UNK MG, ONCE DAILY
     Route: 042
     Dates: start: 20141225, end: 20141225
  2. TACROLIMUS. [Suspect]
     Active Substance: TACROLIMUS
     Indication: RENAL TRANSPLANT
     Dosage: UNK MG, UNKNOWN FREQ.
     Route: 050

REACTIONS (5)
  - Acute kidney injury [Recovering/Resolving]
  - Anuria [Recovering/Resolving]
  - Drug interaction [Recovering/Resolving]
  - Drug level increased [Recovering/Resolving]
  - Hypotension [Recovering/Resolving]

NARRATIVE: CASE EVENT DATE: 20141225
